FAERS Safety Report 7753535-8 (Version None)
Quarter: 2011Q3

REPORT INFORMATION
  Report Type: 
  Country: None (occurrence: None)
  Receive Date: 20110915
  Receipt Date: 20110907
  Transmission Date: 20111222
  Serious: Yes (Other)
  Sender: FDA-Public Use
  Company Number: US-JNJFOC-20110300584

PATIENT
  Sex: Female
  Weight: 27.22 kg

DRUGS (2)
  1. REMICADE [Suspect]
     Indication: INFLAMMATORY BOWEL DISEASE
     Route: 042
     Dates: start: 20101229
  2. REMICADE [Suspect]
     Route: 042
     Dates: start: 20090630

REACTIONS (4)
  - MALNUTRITION [None]
  - UNDERWEIGHT [None]
  - URINARY TRACT INFECTION [None]
  - VOMITING [None]
